FAERS Safety Report 20834202 (Version 2)
Quarter: 2022Q2

REPORT INFORMATION
  Report Type: Spontaneous
  Country: AU (occurrence: AU)
  Receive Date: 20220516
  Receipt Date: 20220523
  Transmission Date: 20220721
  Serious: Yes (Other)
  Sender: FDA-Public Use
  Company Number: AU-BAUSCH-BL-2022-011941

PATIENT

DRUGS (5)
  1. BUDESONIDE [Suspect]
     Active Substance: BUDESONIDE
     Indication: Crohn^s disease
     Route: 064
  2. MESALAMINE [Suspect]
     Active Substance: MESALAMINE
     Indication: Crohn^s disease
     Route: 064
  3. PREDNISOLONE [Suspect]
     Active Substance: PREDNISOLONE
     Indication: Crohn^s disease
     Route: 064
  4. HYDROCORTISONE [Suspect]
     Active Substance: HYDROCORTISONE
     Indication: Crohn^s disease
     Route: 064
  5. INFLIXIMAB [Suspect]
     Active Substance: INFLIXIMAB
     Indication: Crohn^s disease
     Route: 064

REACTIONS (3)
  - Premature baby [Unknown]
  - Low birth weight baby [Unknown]
  - Foetal exposure during pregnancy [Recovered/Resolved]
